FAERS Safety Report 20741999 (Version 7)
Quarter: 2022Q3

REPORT INFORMATION
  Report Type: Report from Study
  Country: CA (occurrence: CA)
  Receive Date: 20220423
  Receipt Date: 20220901
  Transmission Date: 20221027
  Serious: Yes (Other)
  Sender: FDA-Public Use
  Company Number: CA-BRISTOL-MYERS SQUIBB COMPANY-2022-024008

PATIENT
  Age: 62 Year
  Sex: Male
  Weight: 64 kg

DRUGS (6)
  1. ORENCIA [Suspect]
     Active Substance: ABATACEPT
     Indication: Rheumatoid arthritis
     Dosage: 4 WEEKS
     Route: 042
     Dates: start: 20150302
  2. ORENCIA [Suspect]
     Active Substance: ABATACEPT
     Dosage: 4 WEEKS
     Route: 042
     Dates: start: 20150302
  3. ORENCIA [Suspect]
     Active Substance: ABATACEPT
     Route: 042
     Dates: start: 20220228
  4. ORENCIA [Suspect]
     Active Substance: ABATACEPT
     Route: 042
     Dates: start: 20220328
  5. METHOTREXATE SODIUM [Concomitant]
     Active Substance: METHOTREXATE SODIUM
     Indication: Product used for unknown indication
     Route: 065
  6. ENBREL [Concomitant]
     Active Substance: ETANERCEPT
     Indication: Product used for unknown indication
     Route: 065

REACTIONS (4)
  - Hernia [Not Recovered/Not Resolved]
  - Blood pressure systolic increased [Recovering/Resolving]
  - Oxygen saturation decreased [Unknown]
  - Inappropriate schedule of product administration [Unknown]

NARRATIVE: CASE EVENT DATE: 20220101
